FAERS Safety Report 19302128 (Version 2)
Quarter: 2021Q2

REPORT INFORMATION
  Report Type: Report from Study
  Country: MX (occurrence: MX)
  Receive Date: 20210525
  Receipt Date: 20210618
  Transmission Date: 20210717
  Serious: Yes (Other)
  Sender: FDA-Public Use
  Company Number: MX-REGENERON PHARMACEUTICALS, INC.-2021-52828

PATIENT

DRUGS (2)
  1. EYLEA [Suspect]
     Active Substance: AFLIBERCEPT
     Indication: RETINAL ARTERY OCCLUSION
  2. EYLEA [Suspect]
     Active Substance: AFLIBERCEPT
     Indication: MACULAR OEDEMA
     Dosage: 1 DF, Q1MON, 1 DOSE EACH EYE
     Route: 031
     Dates: start: 20210507

REACTIONS (5)
  - Eye haemorrhage [Recovered/Resolved]
  - Eye pain [Recovered/Resolved]
  - Vitreous floaters [Recovered/Resolved]
  - Foreign body sensation in eyes [Recovering/Resolving]
  - Eye pain [Recovering/Resolving]

NARRATIVE: CASE EVENT DATE: 20210508
